FAERS Safety Report 8586964-3 (Version None)
Quarter: 2012Q3

REPORT INFORMATION
  Report Type: 
  Country: None (occurrence: None)
  Receive Date: 20120810
  Receipt Date: 20120806
  Transmission Date: 20120928
  Serious: Yes (Other)
  Sender: FDA-Public Use
  Company Number: US-PFIZER INC-2012192096

PATIENT
  Age: 44 Year
  Sex: Male
  Weight: 82.086 kg

DRUGS (4)
  1. TRIAZOLAM [Concomitant]
     Indication: INSOMNIA
     Dosage: HALF TABLET OF 0.25MG DAILY
     Route: 048
     Dates: start: 20120101
  2. VIAGRA [Suspect]
     Indication: ERECTILE DYSFUNCTION
     Dosage: UNK
     Route: 048
  3. CIALIS [Suspect]
     Indication: ERECTILE DYSFUNCTION
     Dosage: UNK
     Route: 048
  4. CAVERJECT [Suspect]
     Indication: ERECTILE DYSFUNCTION
     Dosage: 20 UG,  EVERY OTHER DAY
     Dates: start: 20111001

REACTIONS (5)
  - CHEST PAIN [None]
  - DRUG HYPERSENSITIVITY [None]
  - URINARY RETENTION [None]
  - VISUAL IMPAIRMENT [None]
  - SURGERY [None]
